FAERS Safety Report 21298798 (Version 1)
Quarter: 2022Q3

REPORT INFORMATION
  Report Type: Spontaneous
  Country: US (occurrence: None)
  Receive Date: 20220905
  Receipt Date: 20220905
  Transmission Date: 20221027
  Serious: Yes (Hospitalization)
  Sender: FDA-Public Use
  Company Number: None

PATIENT
  Age: 88 Year
  Sex: Male
  Weight: 79 kg

DRUGS (1)
  1. APIXABAN [Suspect]
     Active Substance: APIXABAN
     Indication: Pulmonary embolism
     Dosage: 5 MG BID PO?
     Route: 048
     Dates: start: 20190628, end: 20211028

REACTIONS (2)
  - Pulmonary embolism [None]
  - Metastases to bone [None]

NARRATIVE: CASE EVENT DATE: 20211022
